FAERS Safety Report 7025266-3 (Version None)
Quarter: 2010Q4

REPORT INFORMATION
  Report Type: 
  Country: None (occurrence: None)
  Receive Date: 20101001
  Receipt Date: 20100924
  Transmission Date: 20110411
  Serious: Yes (Hospitalization)
  Sender: FDA-Public Use
  Company Number: AR-ABBOTT-10P-007-0673312-00

PATIENT
  Age: 41 Year
  Sex: Male

DRUGS (5)
  1. RITONAVIR [Suspect]
     Indication: ANTIRETROVIRAL THERAPY
     Dosage: 800 MG DAILY
     Route: 048
  2. EMTRICITABINE [Concomitant]
     Indication: ANTIRETROVIRAL THERAPY
  3. LAMIVUDINE [Concomitant]
     Indication: ANTIRETROVIRAL THERAPY
  4. ZIDOVUDINE [Concomitant]
     Indication: ANTIRETROVIRAL THERAPY
  5. TENOFOVIR [Concomitant]
     Indication: ANTIRETROVIRAL THERAPY

REACTIONS (1)
  - ISCHAEMIC STROKE [None]
